FAERS Safety Report 8279922-X (Version None)
Quarter: 2012Q2

REPORT INFORMATION
  Report Type: 
  Country: None (occurrence: None)
  Receive Date: 20120412
  Receipt Date: 20120409
  Transmission Date: 20120825
  Serious: No
  Sender: FDA-Public Use
  Company Number: US-PFIZER INC-2012088476

PATIENT
  Sex: Female
  Weight: 61.678 kg

DRUGS (8)
  1. LOSARTAN POTASSIUM AND HYDROCHLOROTHIAZIDE [Concomitant]
     Dosage: 100/12.5 MG, DAILY
  2. DILTIAZEM [Concomitant]
     Indication: CARDIAC DISORDER
     Dosage: 180 MG, 2X/DAY
  3. LIPITOR [Concomitant]
     Dosage: 10 MG, DAILY
     Route: 048
  4. ADVIL PM [Suspect]
     Indication: PAIN
     Dosage: 200/38 MG, AS NEEDED
     Route: 048
     Dates: start: 20100101
  5. IBUPROFEN (ADVIL) [Concomitant]
     Indication: PAIN
     Dosage: UNK, AS NEEDED
     Route: 048
  6. ADVIL PM [Suspect]
     Indication: SLEEP DISORDER
  7. RANITIDINE [Concomitant]
     Indication: DYSPEPSIA
     Dosage: 150 MG, 2X/DAY
  8. FOSAMAX [Concomitant]
     Indication: OSTEOPOROSIS
     Dosage: 70 MG, WEEKLY
     Route: 048

REACTIONS (1)
  - BLOOD PRESSURE INCREASED [None]
